FAERS Safety Report 8406460 (Version 2)
Quarter: 2014Q1

REPORT INFORMATION
  Report Type: Spontaneous
  Country: US (occurrence: US)
  Receive Date: 20120215
  Receipt Date: 20140124
  Transmission Date: 20141002
  Serious: Yes (Other)
  Sender: FDA-Public Use
  Company Number: US-BAYER-2012-013727

PATIENT
  Age: 34 Year
  Sex: Female

DRUGS (4)
  1. YAZ [Suspect]
     Dosage: UNK
     Dates: start: 200509, end: 2009
  2. YASMIN [Suspect]
     Dosage: UNK
     Dates: start: 200509, end: 2009
  3. WELLBUTRIN XL [Concomitant]
     Dosage: 150 MG, UNK
  4. FROVA [Concomitant]
     Indication: MIGRAINE
     Dosage: 2.5 MG, UNK

REACTIONS (9)
  - Gallbladder disorder [None]
  - Cholecystitis chronic [None]
  - Gallbladder pain [None]
  - Injury [None]
  - Pain [None]
  - Anxiety [None]
  - Psychological trauma [None]
  - Post cholecystectomy syndrome [None]
  - Gastrointestinal disorder [None]
